FAERS Safety Report 9863404 (Version 1)
Quarter: 2014Q1

REPORT INFORMATION
  Report Type: Spontaneous
  Country: US (occurrence: US)
  Receive Date: 20140203
  Receipt Date: 20140203
  Transmission Date: 20141002
  Serious: No
  Sender: FDA-Public Use
  Company Number: US-PFIZER INC-2014030188

PATIENT
  Age: 49 Year
  Sex: Female
  Weight: 113.38 kg

DRUGS (4)
  1. CELEBREX [Suspect]
     Indication: PAIN
     Dosage: 200 MG, 1X/DAY
     Route: 048
     Dates: start: 20140124
  2. LASIX [Concomitant]
     Dosage: 40 MG, UNK
  3. DIPHENOXYLATE [Concomitant]
     Indication: GASTRIC DISORDER
     Dosage: UNK
  4. MOBIC [Concomitant]
     Indication: PAIN
     Dosage: 50 MG, UNK

REACTIONS (2)
  - Drug ineffective [Unknown]
  - Middle insomnia [Unknown]
